FAERS Safety Report 7645168-9 (Version None)
Quarter: 2011Q3

REPORT INFORMATION
  Report Type: 
  Country: None (occurrence: None)
  Receive Date: 20110729
  Receipt Date: 20110722
  Transmission Date: 20111222
  Serious: Yes (Other)
  Sender: FDA-Public Use
  Company Number: DE-CEPHALON-2011003956

PATIENT
  Sex: Male

DRUGS (1)
  1. BENDAMUSTINE HCL [Suspect]
     Indication: CHRONIC LYMPHOCYTIC LEUKAEMIA
     Route: 042

REACTIONS (2)
  - PANCYTOPENIA [None]
  - PYREXIA [None]
